FAERS Safety Report 8525152-3 (Version None)
Quarter: 2012Q3

REPORT INFORMATION
  Report Type: 
  Country: None (occurrence: None)
  Receive Date: 20120720
  Receipt Date: 20120709
  Transmission Date: 20120928
  Serious: Yes (Hospitalization, Other)
  Sender: FDA-Public Use
  Company Number: PHHO2009DE05641

PATIENT
  Sex: Female
  Weight: 60 kg

DRUGS (2)
  1. GILENYA [Suspect]
     Indication: MULTIPLE SCLEROSIS
     Dosage: 30 UG, QW
     Route: 048
     Dates: start: 20080612, end: 20081209
  2. LEVOTHYROXINE SODIUM [Concomitant]
     Indication: HYPOTHYROIDISM

REACTIONS (10)
  - MUSCLE SPASTICITY [None]
  - IDIOPATHIC THROMBOCYTOPENIC PURPURA [None]
  - INFLAMMATION [None]
  - PAIN [None]
  - CONTUSION [None]
  - HAEMATOMA [None]
  - MULTIPLE SCLEROSIS [None]
  - ACUTE DISSEMINATED ENCEPHALOMYELITIS [None]
  - PLATELET COUNT ABNORMAL [None]
  - MENORRHAGIA [None]
